FAERS Safety Report 23407452 (Version 1)
Quarter: 2024Q1

REPORT INFORMATION
  Report Type: Report from Study
  Country: US (occurrence: US)
  Receive Date: 20240117
  Receipt Date: 20240117
  Transmission Date: 20240410
  Serious: Yes (Other)
  Sender: FDA-Public Use
  Company Number: US-ABBVIE-5588153

PATIENT
  Age: 41 Year
  Sex: Female

DRUGS (1)
  1. HUMIRA [Suspect]
     Active Substance: ADALIMUMAB
     Indication: Rheumatoid arthritis
     Dosage: CITRATE FREE.?FORM STRENGTH: 40 MILLIGRAMS.
     Route: 058
     Dates: start: 20230604

REACTIONS (6)
  - Osteoarthritis [Unknown]
  - Joint injury [Unknown]
  - Back pain [Unknown]
  - Inflammatory marker increased [Recovering/Resolving]
  - Injection site reaction [Recovered/Resolved]
  - Nerve compression [Unknown]

NARRATIVE: CASE EVENT DATE: 20230714
